FAERS Safety Report 17875402 (Version 1)
Quarter: 2020Q2

REPORT INFORMATION
  Report Type: Spontaneous
  Country: US (occurrence: US)
  Receive Date: 20200609
  Receipt Date: 20200609
  Transmission Date: 20200714
  Serious: No
  Sender: FDA-Public Use
  Company Number: US-PFIZER INC-2020-07673

PATIENT
  Age: 70 Year
  Sex: Male

DRUGS (2)
  1. BINIMETINIB [Suspect]
     Active Substance: BINIMETINIB
     Dosage: UNK
     Dates: start: 201310
  2. ENCORAFENIB [Suspect]
     Active Substance: ENCORAFENIB
     Dosage: UNK
     Dates: start: 201310

REACTIONS (6)
  - Nausea [Unknown]
  - Discomfort [Unknown]
  - Sleep disorder [Unknown]
  - Abdominal discomfort [Unknown]
  - Pain in extremity [Unknown]
  - Anaemia [Unknown]
